FAERS Safety Report 24312589 (Version 1)
Quarter: 2024Q3

REPORT INFORMATION
  Report Type: Report from Study
  Country: IN (occurrence: IN)
  Receive Date: 20240912
  Receipt Date: 20240912
  Transmission Date: 20241017
  Serious: Yes (Hospitalization, Other)
  Sender: CIPLA
  Company Number: IN-CIPLA LTD.-2024IN09686

PATIENT

DRUGS (6)
  1. METOPROLOL SUCCINATE [Suspect]
     Active Substance: METOPROLOL SUCCINATE
     Indication: Product used for unknown indication
     Dosage: DOSE USED-1, FREQUENCY-1 (UNSPECIFIED UNITS)
     Route: 048
  2. ASPIRIN [Concomitant]
     Active Substance: ASPIRIN
     Indication: Product used for unknown indication
     Dosage: UNK
     Route: 065
  3. TICABID [Concomitant]
     Indication: Product used for unknown indication
     Dosage: UNK
     Route: 065
  4. ROSAVE [Concomitant]
     Indication: Product used for unknown indication
     Dosage: UNK
     Route: 065
  5. UDAPA [Concomitant]
     Indication: Product used for unknown indication
     Dosage: UNK
     Route: 065
  6. PANTRU [Concomitant]
     Indication: Product used for unknown indication
     Dosage: UNK
     Route: 065

REACTIONS (1)
  - Coronary artery disease [Recovered/Resolved]
